FAERS Safety Report 11521880 (Version 1)
Quarter: 2015Q3

REPORT INFORMATION
  Report Type: Spontaneous
  Country: US (occurrence: US)
  Receive Date: 20150918
  Receipt Date: 20150918
  Transmission Date: 20151125
  Serious: Yes (Hospitalization)
  Sender: FDA-Public Use
  Company Number: US-TOLMAR INC.-1042082

PATIENT
  Sex: Male

DRUGS (1)
  1. BETAMETHASONE DIPROPIONATE CREAM USP, 0.05% (AUGMENTED) [Suspect]
     Active Substance: BETAMETHASONE DIPROPIONATE
     Indication: PRURITUS
     Route: 061
     Dates: start: 2013, end: 2014

REACTIONS (3)
  - Laceration [Recovering/Resolving]
  - Infection [Unknown]
  - Skin atrophy [Recovering/Resolving]
